FAERS Safety Report 5096245-0 (Version None)
Quarter: 2006Q3

REPORT INFORMATION
  Report Type: 
  Country: None (occurrence: None)
  Receive Date: 20060905
  Receipt Date: 20060810
  Transmission Date: 20061208
  Serious: Yes (Hospitalization)
  Sender: FDA-Public Use
  Company Number: JP-NOVOPROD-256163

PATIENT
  Age: 34 Year
  Sex: Male

DRUGS (10)
  1. NOVOSEVEN [Suspect]
     Indication: HAEMORRHAGE
     Dosage: 4.8 MG, UNK
     Route: 042
  2. FEIBA                              /00286701/ [Concomitant]
     Dosage: 5000-10000
     Route: 042
  3. TRANSAMIN [Concomitant]
     Dosage: 1000 MG, UNK
  4. PENTASA [Concomitant]
     Dosage: 1500 MG, UNK
     Route: 048
  5. URSO [Concomitant]
     Dosage: 300 MG, UNK
     Route: 048
  6. GLYCYRON                           /00466401/ [Concomitant]
     Dosage: 3 TAB, UNK
     Route: 048
  7. RESLIN [Concomitant]
     Dosage: 150 MG, UNK
     Route: 048
  8. DOGMATYL [Concomitant]
     Dosage: 300 MG, UNK
     Route: 048
  9. TOLEDOMIN [Concomitant]
     Dosage: 45 MG, UNK
     Route: 048
  10. HIRNAMIN                           /00038601/ [Concomitant]
     Dosage: 15 MG, UNK
     Route: 048

REACTIONS (3)
  - DRUG INEFFECTIVE [None]
  - IATROGENIC INFECTION [None]
  - INJECTION SITE INFECTION [None]
